FAERS Safety Report 24883231 (Version 1)
Quarter: 2025Q1

REPORT INFORMATION
  Report Type: Spontaneous
  Country: MX (occurrence: MX)
  Receive Date: 20250124
  Receipt Date: 20250124
  Transmission Date: 20250409
  Serious: Yes (Hospitalization)
  Sender: NOVO NORDISK
  Company Number: MX-NOVOPROD-1352004

PATIENT
  Age: 62 Year
  Sex: Female
  Weight: 68 kg

DRUGS (4)
  1. SAXENDA [Suspect]
     Active Substance: LIRAGLUTIDE
     Indication: Blood glucose abnormal
     Dates: start: 20241105, end: 20250105
  2. SAXENDA [Suspect]
     Active Substance: LIRAGLUTIDE
     Indication: Weight control
  3. LEVOTHYROXINE SODIUM [Concomitant]
     Active Substance: LEVOTHYROXINE SODIUM
     Indication: Hypothyroidism
  4. TIBOLONE [Concomitant]
     Active Substance: TIBOLONE

REACTIONS (1)
  - Oesophagitis [Recovering/Resolving]

NARRATIVE: CASE EVENT DATE: 20250105
